FAERS Safety Report 11162150 (Version 1)
Quarter: 2015Q2

REPORT INFORMATION
  Report Type: Spontaneous
  Country: US (occurrence: None)
  Receive Date: 20150602
  Receipt Date: 20150602
  Transmission Date: 20150821
  Serious: Yes (Other)
  Sender: FDA-Public Use
  Company Number: BD-2015-0421

PATIENT
  Age: 73 Year
  Sex: Male

DRUGS (8)
  1. PANTOPRAZOLE [Concomitant]
     Active Substance: PANTOPRAZOLE SODIUM
  2. SODIUM BICARBONATE. [Suspect]
     Active Substance: SODIUM BICARBONATE
     Indication: DYSPEPSIA
     Route: 048
  3. ASPIRIN /00002701/ (ACETYLSALICYLIC ACID) [Concomitant]
  4. DIPHENHYDRAMINE [Suspect]
     Active Substance: DIPHENHYDRAMINE
     Indication: PRODUCT USED FOR UNKNOWN INDICATION
  5. NORMAL SALINE (SODIUM CHLORIDE) [Concomitant]
  6. POTASSIUM CHLORIDE. [Concomitant]
     Active Substance: POTASSIUM CHLORIDE
  7. METOCLOPRAMIDE. [Suspect]
     Active Substance: METOCLOPRAMIDE
     Indication: PRODUCT USED FOR UNKNOWN INDICATION
  8. HYDROCODONE/ACETAMINOPHEN /00607101/ (HYDROCODONE BITARTRATE, PARACETAMOL) [Concomitant]

REACTIONS (3)
  - Respiratory acidosis [None]
  - Hypokalaemia [None]
  - Metabolic alkalosis [None]
